FAERS Safety Report 10240999 (Version 1)
Quarter: 2014Q1

REPORT INFORMATION
  Report Type: Spontaneous
  Country: US (occurrence: None)
  Receive Date: 20140306
  Receipt Date: 20140306
  Transmission Date: 20141002
  Serious: Yes (Other)
  Sender: FDA-Public Use
  Company Number: 163-21880-13061301

PATIENT
  Age: 82 Year
  Sex: Female

DRUGS (15)
  1. REVLIMID (LENALIDOMIDE) (10 MILLIGRAM, CAPSULES) [Suspect]
     Indication: PLASMA CELL MYELOMA
     Dosage: 10 MG, 21 IN 21 D, PO
     Route: 048
     Dates: start: 20120827
  2. TRIAMTERENE-HCTZ (DYAZIDE) (UNKNOWN) [Concomitant]
  3. ONDANSETRON (ONDANSETRON) (UNKNOWN) [Concomitant]
  4. HYDROCODONE-ACETAMINOPHEN (REMEDINE) (UNKNOWN) [Concomitant]
  5. VYTORIN (INEGY) (UNKNOWN) [Concomitant]
  6. PROAIR HFA (SALBUTAMOL SULFATE) (INHALANT) [Concomitant]
  7. CICLOPIROX (CICLOPIROX) (CREAM) [Concomitant]
  8. CYMBALTA [Concomitant]
  9. CYCLOPHOSPHAMIDE (CYCLOPHOSPHAMIDE) (UNKNOWN) (CYCLOPHOSAPHAMIDE) [Concomitant]
  10. DEXAMETHASONE (DEXAMETHASONE) [Concomitant]
  11. FUROSEMIDE (FUROSEMIDE) (UNKNOWN) [Concomitant]
  12. LYRICA (PREGABALIN) (UNKNOWN) [Concomitant]
  13. SYNTHROID (LEVOTHYROXINE SODIUM) (UNKNOWN) [Concomitant]
  14. ADVAIR DISKUS (SERETIDE MITE) (UNKNOWN) [Concomitant]
  15. CYCLOBENZAPRINE (CYCLOBENZAPRINE) (UNKNOWN) [Concomitant]

REACTIONS (2)
  - Full blood count decreased [None]
  - Malaise [None]
